FAERS Safety Report 8820536 (Version 1)
Quarter: 2012Q4

REPORT INFORMATION
  Report Type: 
  Country: US (occurrence: US)
  Receive Date: 20121002
  Receipt Date: 20121002
  Transmission Date: 20130627
  Serious: No
  Sender: FDA-Public Use
  Company Number: US-BAYER-2012-100813

PATIENT
  Sex: Male

DRUGS (2)
  1. BETASERON [Suspect]
     Dosage: UNK
     Dates: start: 2002
  2. COPAXONE [Concomitant]

REACTIONS (2)
  - Lower extremity mass [None]
  - Influenza like illness [None]
